FAERS Safety Report 10163722 (Version 2)
Quarter: 2014Q2

REPORT INFORMATION
  Report Type: Spontaneous
  Country: HR (occurrence: HR)
  Receive Date: 20140509
  Receipt Date: 20140519
  Transmission Date: 20141212
  Serious: Yes (Hospitalization)
  Sender: FDA-Public Use
  Company Number: HR-TEVA-479308ISR

PATIENT
  Sex: 0

DRUGS (2)
  1. CLOPIDOGREL [Suspect]
     Route: 065
  2. UNSPECIFIED CALCIUM CHANNEL ANTAGONISTS [Interacting]

REACTIONS (2)
  - Myocardial infarction [Unknown]
  - Drug interaction [Unknown]
